FAERS Safety Report 6342789-0 (Version None)
Quarter: 2009Q3

REPORT INFORMATION
  Report Type: 
  Country: None (occurrence: None)
  Receive Date: 20090908
  Receipt Date: 20070713
  Transmission Date: 20100115
  Serious: Yes (Other)
  Sender: FDA-Public Use
  Company Number: US-ASTRAZENECA-2006UW11983

PATIENT
  Age: 19013 Day
  Sex: Female
  Weight: 73.5 kg

DRUGS (15)
  1. SEROQUEL [Suspect]
     Indication: MANIA
     Dosage: 100-800 MG
     Route: 048
     Dates: start: 19980115
  2. SEROQUEL [Suspect]
     Route: 048
  3. HALDOL [Concomitant]
  4. RISPERDAL [Concomitant]
  5. SOLIAN [Concomitant]
  6. TEMAZEPAM [Concomitant]
     Dates: start: 20080111
  7. TRAZODONE HCL [Concomitant]
     Dosage: 1-3 MG
     Dates: start: 19980115
  8. BENZTROPINE MESYLATE [Concomitant]
     Dates: start: 20050314
  9. SIMVASTATIN [Concomitant]
     Dates: start: 20080111
  10. LAMICTAL [Concomitant]
     Dates: start: 20080111
  11. LIMBITROL [Concomitant]
     Dosage: 10-25 MG TABLETS QHS, 5-12.5 MG
     Dates: start: 20050314
  12. METFORMIN HCL [Concomitant]
     Dates: start: 20050314
  13. DIPHENOXYLATE HCL + ATROPINE SULFATE [Concomitant]
     Dosage: 2.5-0.025 MG
     Dates: start: 20050314
  14. AVANDAMET [Concomitant]
     Dates: start: 20050314
  15. CAPTOPRIL [Concomitant]
     Dates: start: 20050314

REACTIONS (10)
  - DIABETES MELLITUS [None]
  - DIABETIC COMA [None]
  - DIABETIC GASTROPATHY [None]
  - DIABETIC KETOACIDOSIS [None]
  - DIABETIC NEPHROPATHY [None]
  - DIABETIC NEUROPATHY [None]
  - HYPERTRIGLYCERIDAEMIA [None]
  - KETOACIDOSIS [None]
  - TYPE 1 DIABETES MELLITUS [None]
  - TYPE 2 DIABETES MELLITUS [None]
